FAERS Safety Report 14935028 (Version 1)
Quarter: 2018Q2

REPORT INFORMATION
  Report Type: Spontaneous
  Country: US (occurrence: US)
  Receive Date: 20180506
  Receipt Date: 20180506
  Transmission Date: 20180711
  Serious: Yes (Other)
  Sender: FDA-Public Use
  Company Number: None

PATIENT
  Age: 17 Year
  Sex: Female
  Weight: 58.5 kg

DRUGS (1)
  1. CIPROFLOXACIN. [Suspect]
     Active Substance: CIPROFLOXACIN
     Indication: KIDNEY INFECTION
     Route: 048

REACTIONS (6)
  - Balance disorder [None]
  - Myalgia [None]
  - Skin disorder [None]
  - Urticaria [None]
  - Asthenia [None]
  - Arthropathy [None]

NARRATIVE: CASE EVENT DATE: 20180227
